FAERS Safety Report 5765747-3 (Version None)
Quarter: 2008Q2

REPORT INFORMATION
  Report Type: 
  Country: None (occurrence: None)
  Receive Date: 20080606
  Receipt Date: 20080527
  Transmission Date: 20081010
  Serious: Yes (Death, Other)
  Sender: FDA-Public Use
  Company Number: 08H-163-0314331-00

PATIENT
  Sex: Male

DRUGS (3)
  1. DIGOXIN [Suspect]
     Indication: CARDIAC DISORDER
  2. SALINE-TYPE SOLUTION (PARENTERAL) [Concomitant]
  3. MORPHINE [Concomitant]

REACTIONS (3)
  - BLOOD POTASSIUM INCREASED [None]
  - CARDIAC ARREST [None]
  - MEDICATION ERROR [None]
